FAERS Safety Report 9303704 (Version 1)
Quarter: 2013Q2

REPORT INFORMATION
  Report Type: Spontaneous
  Country: US (occurrence: US)
  Receive Date: 20130522
  Receipt Date: 20130522
  Transmission Date: 20140414
  Serious: Yes (Hospitalization)
  Sender: FDA-Public Use
  Company Number: US-GLAXOSMITHKLINE-A0783333A

PATIENT
  Age: 60 Year
  Sex: Female
  Weight: 106 kg

DRUGS (2)
  1. AVANDIA [Suspect]
     Indication: DIABETES MELLITUS
     Dosage: 4MG TWICE PER DAY
     Route: 048
     Dates: start: 20000317, end: 20070501
  2. AVANDAMET [Suspect]
     Indication: DIABETES MELLITUS
     Route: 048
     Dates: start: 20031229, end: 20050324

REACTIONS (4)
  - Cardiomyopathy [Unknown]
  - Implantable defibrillator insertion [Unknown]
  - Ventricular tachycardia [Unknown]
  - Cardiac failure congestive [Unknown]
